FAERS Safety Report 5625553-7 (Version None)
Quarter: 2008Q1

REPORT INFORMATION
  Report Type: 
  Country: None (occurrence: None)
  Receive Date: 20080211
  Receipt Date: 20080211
  Transmission Date: 20080703
  Serious: Yes (Disabling)
  Sender: FDA-Public Use
  Company Number: None

PATIENT
  Age: 10 Year
  Sex: Female
  Weight: 59.1 kg

DRUGS (2)
  1. CEFTRIAXONE [Suspect]
     Indication: ANTIBIOTIC PROPHYLAXIS
     Dosage: 1500MG ONCE IV
     Route: 042
     Dates: start: 20070206, end: 20070206
  2. CEFTRIAXONE [Suspect]
     Indication: APPENDICITIS
     Dosage: 1500MG ONCE IV
     Route: 042
     Dates: start: 20070206, end: 20070206

REACTIONS (1)
  - ERYTHEMA [None]
